FAERS Safety Report 15806143 (Version 1)
Quarter: 2018Q4

REPORT INFORMATION
  Report Type: Spontaneous
  Country: US (occurrence: US)
  Receive Date: 20181213
  Receipt Date: 20181213
  Transmission Date: 20190205
  Serious: Yes (Hospitalization)
  Sender: FDA-Public Use
  Company Number: None

PATIENT
  Age: 65 Year
  Sex: Male

DRUGS (1)
  1. CLOZAPINE (MYLAN) [Suspect]
     Active Substance: CLOZAPINE
     Indication: SCHIZOAFFECTIVE DISORDER
     Route: 048
     Dates: start: 20171017, end: 20171025

REACTIONS (5)
  - Pericarditis [None]
  - Malaise [None]
  - Sedation [None]
  - Hyperglycaemia [None]
  - Lethargy [None]

NARRATIVE: CASE EVENT DATE: 20171108
